FAERS Safety Report 9701297 (Version 1)
Quarter: 2013Q4

REPORT INFORMATION
  Report Type: Spontaneous
  Country: US (occurrence: US)
  Receive Date: 20131121
  Receipt Date: 20131121
  Transmission Date: 20140711
  Serious: No
  Sender: FDA-Public Use
  Company Number: US-GILEAD-2008-0016337

PATIENT
  Sex: Male
  Weight: 88.9 kg

DRUGS (7)
  1. LETAIRIS [Suspect]
     Indication: PULMONARY ARTERIAL HYPERTENSION
     Route: 048
     Dates: start: 20080305
  2. LASIX [Concomitant]
     Route: 048
  3. METOLAZONE [Concomitant]
     Route: 048
  4. SPIRONOLACTONE [Concomitant]
     Route: 048
  5. FLOLAN [Concomitant]
     Dosage: CONTINUOUS
     Route: 042
  6. POTASSIUM CHLORIDE [Concomitant]
     Route: 048
  7. COUMADIN [Concomitant]
     Route: 048

REACTIONS (1)
  - Nasal congestion [Unknown]
